FAERS Safety Report 17375975 (Version 1)
Quarter: 2020Q1

REPORT INFORMATION
  Report Type: Spontaneous
  Country: US (occurrence: US)
  Receive Date: 20200206
  Receipt Date: 20200206
  Transmission Date: 20200409
  Serious: No
  Sender: FDA-Public Use
  Company Number: US-ALLERGAN-1940650US

PATIENT
  Age: 71 Year
  Sex: Female

DRUGS (3)
  1. XALATAN [Concomitant]
     Active Substance: LATANOPROST
     Indication: GLAUCOMA
     Dosage: UNK
  2. ALORA [Suspect]
     Active Substance: ESTRADIOL
     Indication: HYSTERECTOMY
     Dosage: 1 DF, BI-WEEKLY
     Route: 062
  3. ALORA [Suspect]
     Active Substance: ESTRADIOL
     Indication: MENOPAUSE

REACTIONS (1)
  - Drug ineffective [Unknown]
